FAERS Safety Report 24906142 (Version 1)
Quarter: 2025Q1

REPORT INFORMATION
  Report Type: Spontaneous
  Country: US (occurrence: None)
  Receive Date: 20250130
  Receipt Date: 20250130
  Transmission Date: 20250409
  Serious: Yes (unspecified)
  Sender: FDA-CTU
  Company Number: None

PATIENT
  Age: 36 Year
  Sex: Female
  Weight: 89.36 kg

DRUGS (1)
  1. PITOCIN [Suspect]
     Active Substance: OXYTOCIN

REACTIONS (6)
  - Device malfunction [None]
  - Device issue [None]
  - Uterine hypotonus [None]
  - Abdominal pain [None]
  - Tachycardia foetal [None]
  - Accidental overdose [None]

NARRATIVE: CASE EVENT DATE: 20250129
